FAERS Safety Report 6651058-0 (Version None)
Quarter: 2010Q1

REPORT INFORMATION
  Report Type: 
  Country: None (occurrence: None)
  Receive Date: 20100325
  Receipt Date: 20100315
  Transmission Date: 20100710
  Serious: Yes (Other)
  Sender: FDA-Public Use
  Company Number: US-BAXTER-2010BH007086

PATIENT
  Age: 52 Year
  Sex: Male

DRUGS (7)
  1. GAMMAGARD LIQUID [Suspect]
     Indication: CHRONIC INFLAMMATORY DEMYELINATING POLYRADICULONEUROPATHY
     Route: 042
     Dates: start: 20080601
  2. GAMMAGARD LIQUID [Suspect]
     Indication: OFF LABEL USE
     Route: 042
     Dates: start: 20080601
  3. GAMMAGARD LIQUID [Suspect]
     Route: 042
     Dates: start: 20080601
  4. GAMMAGARD LIQUID [Suspect]
     Route: 042
     Dates: start: 20080601
  5. LEXAPRO [Suspect]
     Indication: DRUG USE FOR UNKNOWN INDICATION
     Route: 065
  6. TYLENOL-500 [Concomitant]
     Indication: PREMEDICATION
  7. BENADRYL [Concomitant]
     Indication: PREMEDICATION

REACTIONS (1)
  - HAEMOLYTIC ANAEMIA [None]
